FAERS Safety Report 9529735 (Version 1)
Quarter: 2013Q3

REPORT INFORMATION
  Report Type: Spontaneous
  Country: US (occurrence: US)
  Receive Date: 20130917
  Receipt Date: 20130917
  Transmission Date: 20140515
  Serious: No
  Sender: FDA-Public Use
  Company Number: US-SANOFI-AVENTIS-2013SA077456

PATIENT
  Age: 90 Year
  Sex: Female

DRUGS (1)
  1. HIPREX [Suspect]
     Dosage: TAKEN FROM- OVER 5 YEARS
     Route: 065
     Dates: end: 20130725

REACTIONS (2)
  - Muscle spasms [Recovered/Resolved]
  - Diarrhoea [Recovered/Resolved]
